FAERS Safety Report 7034804-6 (Version None)
Quarter: 2010Q4

REPORT INFORMATION
  Report Type: 
  Country: None (occurrence: None)
  Receive Date: 20101008
  Receipt Date: 20100924
  Transmission Date: 20110411
  Serious: Yes (Hospitalization)
  Sender: FDA-Public Use
  Company Number: US-RANBAXY-2010US-32080

PATIENT

DRUGS (9)
  1. ZOLPIDEM TARTRATE [Suspect]
     Indication: PRODUCT USED FOR UNKNOWN INDICATION
     Dosage: UNK
     Route: 048
  2. ALLOPURINOL [Suspect]
     Indication: PRODUCT USED FOR UNKNOWN INDICATION
     Dosage: 100 MG, QD
     Route: 048
  3. DEPAKENE [Suspect]
     Indication: PRODUCT USED FOR UNKNOWN INDICATION
     Dosage: 250 MG, QD
     Route: 048
     Dates: start: 19990101
  4. FLUPHENAZIDE DECONOATE [Suspect]
     Indication: PRODUCT USED FOR UNKNOWN INDICATION
     Dosage: UNK
     Route: 030
     Dates: start: 19940101
  5. ISOPTIN SR [Suspect]
     Indication: HYPERTROPHIC CARDIOMYOPATHY
     Dosage: UNK
     Route: 048
  6. ISOPTIN SR [Suspect]
     Indication: CARDIAC DISORDER
  7. ETHYL LOFLAZEPATE [Suspect]
     Indication: HYPERTROPHIC CARDIOMYOPATHY
     Dosage: 4 MG (2 MG, 2 IN 1 D)
     Route: 048
  8. ETHYL LOFLAZEPATE [Suspect]
     Indication: CARDIAC DISORDER
  9. MEPRONIZINE [Suspect]
     Indication: PRODUCT USED FOR UNKNOWN INDICATION
     Dosage: 410 MG, QD
     Route: 048
     Dates: start: 20040101

REACTIONS (5)
  - DYSPNOEA [None]
  - HYPERKALAEMIA [None]
  - INAPPROPRIATE ANTIDIURETIC HORMONE SECRETION [None]
  - LUNG DISORDER [None]
  - OEDEMA [None]
